FAERS Safety Report 11192881 (Version 1)
Quarter: 2015Q2

REPORT INFORMATION
  Report Type: Spontaneous
  Country: FR (occurrence: FR)
  Receive Date: 20150616
  Receipt Date: 20150616
  Transmission Date: 20150821
  Serious: Yes (Death, Hospitalization, Other)
  Sender: FDA-Public Use
  Company Number: FR-ASTRAZENECA-2015SE59285

PATIENT
  Age: 435 Month
  Sex: Female

DRUGS (6)
  1. LORAZEPAM. [Suspect]
     Active Substance: LORAZEPAM
     Indication: ANXIETY
     Route: 048
  2. XEROQUEL [Suspect]
     Active Substance: QUETIAPINE FUMARATE
     Indication: SCHIZOPHRENIA
     Route: 048
  3. AVLOCARDYL [Suspect]
     Active Substance: PROPRANOLOL HYDROCHLORIDE
     Indication: SINUS TACHYCARDIA
     Route: 048
  4. THERALENE [Suspect]
     Active Substance: TRIMEPRAZINE
     Indication: INSOMNIA
     Route: 048
  5. SOLIAN [Suspect]
     Active Substance: AMISULPRIDE
     Indication: SCHIZOPHRENIA
     Route: 048
  6. KLIPAL CODEINE [Suspect]
     Active Substance: ACETAMINOPHEN\CODEINE PHOSPHATE
     Indication: PAIN
     Route: 048

REACTIONS (11)
  - Hepatic steatosis [Unknown]
  - Hepatocellular injury [Unknown]
  - Renal failure [Fatal]
  - Metabolic disorder [Fatal]
  - Hepatobiliary scan abnormal [Unknown]
  - Respiratory distress [Fatal]
  - Pancreatitis acute [Fatal]
  - Haemodynamic instability [Fatal]
  - Pancreatic duct obstruction [Unknown]
  - Hepatomegaly [Unknown]
  - Lactic acidosis [Unknown]

NARRATIVE: CASE EVENT DATE: 201501
